FAERS Safety Report 17751738 (Version 11)
Quarter: 2021Q3

REPORT INFORMATION
  Report Type: Report from Study
  Country: JP (occurrence: JP)
  Receive Date: 20200506
  Receipt Date: 20210903
  Transmission Date: 20211014
  Serious: Yes (Life-Threatening, Hospitalization)
  Sender: FDA-Public Use
  Company Number: JP-PFIZER INC-2020179971

PATIENT
  Age: 3 Month
  Sex: Male
  Weight: 3.9 kg

DRUGS (4)
  1. REVATIO [Suspect]
     Active Substance: SILDENAFIL CITRATE
     Indication: PULMONARY HYPERTENSION
     Dosage: 1.33 MG, 3X/DAY
     Dates: start: 20171124, end: 20171213
  2. ADCIRCA [Suspect]
     Active Substance: TADALAFIL
     Indication: PULMONARY HYPERTENSION
     Dosage: UNK
     Route: 048
     Dates: start: 20171213, end: 20171217
  3. VOLIBRIS [Suspect]
     Active Substance: AMBRISENTAN
     Indication: PULMONARY HYPERTENSION
     Dosage: UNK
     Route: 048
     Dates: start: 20171213, end: 20171215
  4. FLOLAN [Suspect]
     Active Substance: EPOPROSTENOL SODIUM
     Indication: PULMONARY HYPERTENSION
     Dosage: UNK
     Route: 041
     Dates: start: 20171027, end: 20181111

REACTIONS (4)
  - Symptom recurrence [Recovering/Resolving]
  - Oliguria [Recovering/Resolving]
  - Blood pressure decreased [Recovering/Resolving]
  - Pulmonary congestion [Recovering/Resolving]

NARRATIVE: CASE EVENT DATE: 20171206
